FAERS Safety Report 5164748-6 (Version None)
Quarter: 2006Q4

REPORT INFORMATION
  Report Type: 
  Country: None (occurrence: None)
  Receive Date: 20061205
  Receipt Date: 20030128
  Transmission Date: 20070319
  Serious: Yes (Hospitalization)
  Sender: FDA-Public Use
  Company Number: FR-GLAXOSMITHKLINE-B0291261A

PATIENT
  Age: 4 Month
  Sex: Male

DRUGS (6)
  1. RETROVIR [Suspect]
     Indication: ANTIVIRAL PROPHYLAXIS
     Route: 048
  2. COMBIVIR [Suspect]
     Indication: HIV INFECTION
  3. VIRACEPT [Suspect]
     Indication: HIV INFECTION
  4. RETROVIR [Suspect]
     Indication: HIV INFECTION
  5. VIDEX [Suspect]
     Indication: HIV INFECTION
  6. RETROVIR [Suspect]
     Route: 042
     Dates: start: 20020225

REACTIONS (3)
  - CONVULSION [None]
  - DRUG EXPOSURE DURING PREGNANCY [None]
  - STRABISMUS [None]
